FAERS Safety Report 8717918 (Version 2)
Quarter: 2015Q1

REPORT INFORMATION
  Report Type: Report from Study
  Country: US (occurrence: US)
  Receive Date: 20120810
  Receipt Date: 20150330
  Transmission Date: 20150721
  Serious: Yes (Death)
  Sender: FDA-Public Use
  Company Number: US-ROCHE-1099306

PATIENT
  Sex: Male

DRUGS (8)
  1. ACTIVASE [Suspect]
     Active Substance: ALTEPLASE
     Indication: MYOCARDIAL INFARCTION
     Route: 042
  2. DIAZEPAM. [Concomitant]
     Active Substance: DIAZEPAM
     Indication: PAIN
     Route: 042
  3. ACTIVASE [Suspect]
     Active Substance: ALTEPLASE
     Route: 040
  4. BRETYLIUM [Concomitant]
     Route: 040
  5. MORPHINE [Concomitant]
     Active Substance: MORPHINE
     Route: 042
  6. ACTIVASE [Suspect]
     Active Substance: ALTEPLASE
     Route: 042
  7. LIDOCAINE. [Concomitant]
     Active Substance: LIDOCAINE
     Route: 040
  8. LIDOCAINE. [Concomitant]
     Active Substance: LIDOCAINE
     Route: 040

REACTIONS (2)
  - Death [Fatal]
  - Drug ineffective [Unknown]
